FAERS Safety Report 4523200-9 (Version None)
Quarter: 2004Q4

REPORT INFORMATION
  Report Type: 
  Country: None (occurrence: None)
  Receive Date: 20041207
  Receipt Date: 20041207
  Transmission Date: 20050328
  Serious: Yes (Hospitalization)
  Sender: FDA-Public Use
  Company Number: None

PATIENT
  Age: 45 Year
  Sex: Female

DRUGS (4)
  1. ADRIAMYCIN PFS [Suspect]
     Indication: BREAST CANCER
     Dosage: 120 MG  Q 3 WKS X 4
     Dates: start: 20011019, end: 20011221
  2. TAXOL [Suspect]
     Indication: BREAST CANCER
     Dosage: 350 MG Q 3 WKS X 4
     Dates: start: 20020111, end: 20020315
  3. CYTOXAN [Suspect]
     Indication: BREAST CANCER
     Dosage: 1200 MG Q 3 WKS X 4
     Dates: start: 20011019, end: 20011221
  4. TAMOXIFEN CITRATE [Concomitant]

REACTIONS (6)
  - CHEST PAIN [None]
  - FLUSHING [None]
  - PALPITATIONS [None]
  - PERICARDITIS [None]
  - SUPRAVENTRICULAR TACHYCARDIA [None]
  - TACHYCARDIA [None]
